FAERS Safety Report 13825409 (Version 2)
Quarter: 2017Q3

REPORT INFORMATION
  Report Type: Spontaneous
  Country: US (occurrence: US)
  Receive Date: 20170802
  Receipt Date: 20170811
  Transmission Date: 20171127
  Serious: Yes (Other)
  Sender: FDA-Public Use
  Company Number: US-BEH-2017082553

PATIENT

DRUGS (1)
  1. ALBUMINAR-5 [Suspect]
     Active Substance: ALBUMIN HUMAN
     Indication: PRODUCT USED FOR UNKNOWN INDICATION
     Dosage: 10-30 ML, TOT
     Route: 042
     Dates: start: 201707, end: 201707

REACTIONS (2)
  - Anaphylactic reaction [Unknown]
  - Hypotension [Unknown]

NARRATIVE: CASE EVENT DATE: 201707
